FAERS Safety Report 5421927-8 (Version None)
Quarter: 2007Q3

REPORT INFORMATION
  Report Type: 
  Country: None (occurrence: None)
  Receive Date: 20070822
  Receipt Date: 20070814
  Transmission Date: 20080115
  Serious: Yes (Other)
  Sender: FDA-Public Use
  Company Number: US-JNJFOC-20070803305

PATIENT
  Sex: Male
  Weight: 99.79 kg

DRUGS (1)
  1. FENTANYL TRANSDERMAL SYSTEM [Suspect]
     Indication: PAIN
     Route: 062

REACTIONS (5)
  - INADEQUATE ANALGESIA [None]
  - INTERVERTEBRAL DISC PROTRUSION [None]
  - SCIATICA [None]
  - SPINAL COLUMN STENOSIS [None]
  - WRONG TECHNIQUE IN DRUG USAGE PROCESS [None]
